FAERS Safety Report 11474885 (Version 1)
Quarter: 2015Q3

REPORT INFORMATION
  Report Type: Spontaneous
  Country: US (occurrence: None)
  Receive Date: 20150908
  Receipt Date: 20150908
  Transmission Date: 20151125
  Serious: No
  Sender: FDA-Public Use
  Company Number: None

PATIENT
  Age: 35 Year
  Sex: Female
  Weight: 76.66 kg

DRUGS (9)
  1. ACYCLOVIR. [Concomitant]
     Active Substance: ACYCLOVIR
  2. SUPER B COMPLEX [Concomitant]
     Active Substance: CYANOCOBALAMIN\DEXPANTHENOL\NIACINAMIDE\PYRIDOXINE HYDROCHLORIDE\RIBOFLAVIN 5^-PHOSPHATE SODIUM\THIAMINE HYDROCHLORIDE\VITAMIN B COMPLEX
  3. KLONOPIN [Concomitant]
     Active Substance: CLONAZEPAM
  4. VITAMIN D [Concomitant]
     Active Substance: CHOLECALCIFEROL
  5. CALCIUM/MAGNESIUM [Concomitant]
  6. CEFDINIR 300 MG NORTHSTAR [Suspect]
     Active Substance: CEFDINIR
     Indication: LYMPHADENITIS
     Dosage: TAKEN BY MOUTH
  7. LEXAPRO [Concomitant]
     Active Substance: ESCITALOPRAM OXALATE
  8. LAMICTAL [Concomitant]
     Active Substance: LAMOTRIGINE
  9. CEFDINIR 300 MG NORTHSTAR [Suspect]
     Active Substance: CEFDINIR
     Indication: LYMPHADENOPATHY
     Dosage: TAKEN BY MOUTH

REACTIONS (1)
  - Vulvovaginal pruritus [None]

NARRATIVE: CASE EVENT DATE: 20150805
